FAERS Safety Report 15634857 (Version 3)
Quarter: 2018Q4

REPORT INFORMATION
  Report Type: Spontaneous
  Country: US (occurrence: US)
  Receive Date: 20181119
  Receipt Date: 20181227
  Transmission Date: 20190205
  Serious: Yes (Death)
  Sender: FDA-Public Use
  Company Number: US-VIFOR (INTERNATIONAL) INC.-VIT-2018-11397

PATIENT
  Sex: Male
  Weight: 86.1 kg

DRUGS (13)
  1. METOPROLOL TARTRATE. [Concomitant]
     Active Substance: METOPROLOL TARTRATE
  2. FLOMAX [Concomitant]
     Active Substance: TAMSULOSIN HYDROCHLORIDE
  3. COUMADIN HCL [Concomitant]
  4. ACETAMINOPHEN. [Concomitant]
     Active Substance: ACETAMINOPHEN
  5. FAMOTIDINE. [Concomitant]
     Active Substance: FAMOTIDINE
  6. ALLOPURINOL. [Concomitant]
     Active Substance: ALLOPURINOL
  7. GABAPENTIN. [Concomitant]
     Active Substance: GABAPENTIN
  8. BISCOLAX [Concomitant]
     Active Substance: BISACODYL
  9. VITAMIN D3 [Concomitant]
     Active Substance: CHOLECALCIFEROL
  10. VELTASSA [Suspect]
     Active Substance: PATIROMER
     Indication: HYPERKALAEMIA
     Route: 048
     Dates: start: 20180818
  11. AMLODIPINE BESYLATE. [Concomitant]
     Active Substance: AMLODIPINE BESYLATE
  12. BUPROPION HCL [Concomitant]
     Active Substance: BUPROPION HYDROCHLORIDE
  13. CYANOCOBALAMIN. [Concomitant]
     Active Substance: CYANOCOBALAMIN

REACTIONS (1)
  - Blood disorder [Fatal]
